FAERS Safety Report 8884198 (Version 1)
Quarter: 2012Q4

REPORT INFORMATION
  Report Type: 
  Country: CH (occurrence: CH)
  Receive Date: 20121102
  Receipt Date: 20121102
  Transmission Date: 20130627
  Serious: Yes (Other)
  Sender: FDA-Public Use
  Company Number: CH-TEVA-366434ISR

PATIENT
  Sex: Female

DRUGS (2)
  1. MODAFINIL [Suspect]
     Route: 048
  2. LAMOTRIGINE [Concomitant]
     Route: 065

REACTIONS (1)
  - Epilepsy [Unknown]
